FAERS Safety Report 17172173 (Version 4)
Quarter: 2020Q1

REPORT INFORMATION
  Report Type: Spontaneous
  Country: US (occurrence: US)
  Receive Date: 20191219
  Receipt Date: 20200313
  Transmission Date: 20200409
  Serious: Yes (Hospitalization, Other)
  Sender: FDA-Public Use
  Company Number: US-PFIZER INC-2019546605

PATIENT
  Age: 64 Year
  Sex: Female
  Weight: 68 kg

DRUGS (19)
  1. TOVIAZ [Suspect]
     Active Substance: FESOTERODINE FUMARATE
     Indication: INCONTINENCE
     Dosage: 8MG, ONCE A DAY (ONCE AT NIGHT/ 11PM)
     Route: 048
     Dates: start: 2015
  2. TRAMADOL. [Concomitant]
     Active Substance: TRAMADOL
     Indication: BACK PAIN
     Dosage: 500 MG, THRICE DAILY
  3. TOVIAZ [Suspect]
     Active Substance: FESOTERODINE FUMARATE
     Indication: HYPERTONIC BLADDER
  4. LIPITOR [Concomitant]
     Active Substance: ATORVASTATIN CALCIUM
     Indication: BLOOD CHOLESTEROL INCREASED
     Dosage: 40 MG, ONCE DAILY [1 @ 11PM]
  5. KEFLEX [Concomitant]
     Active Substance: CEPHALEXIN
     Indication: TRIGONITIS
     Dosage: 500 MG, ONCE DAILY [1 AM DAILY]
  6. VITAMIN B12 [Concomitant]
     Active Substance: CYANOCOBALAMIN
     Dosage: 5000 MG, ONCE DAILY
     Route: 060
  7. CLARITINE [Concomitant]
     Active Substance: LORATADINE
     Indication: HYPERSENSITIVITY
     Dosage: UNK UNK, AS NEEDED
  8. LYRICA [Suspect]
     Active Substance: PREGABALIN
     Indication: BACK PAIN
  9. SPIRONOLACTONE. [Concomitant]
     Active Substance: SPIRONOLACTONE
     Indication: SWELLING
     Dosage: 25 MG, AS NEEDED
  10. LEVETIRACETAM. [Concomitant]
     Active Substance: LEVETIRACETAM
     Indication: SEIZURE
     Dosage: 500 MG, TWICE DAILY
  11. TYLENOL [Concomitant]
     Active Substance: ACETAMINOPHEN
     Indication: BACK PAIN
     Dosage: 500 MG, THRICE DAILY
  12. WARFARIN [Concomitant]
     Active Substance: WARFARIN
     Indication: ANTICOAGULANT THERAPY
     Dosage: 2 MG, UNK
  13. ZINC. [Concomitant]
     Active Substance: ZINC
     Indication: SUPPLEMENTATION THERAPY
     Dosage: 50 MG, ONCE DAILY
  14. B COMPLEX PLUS VITAMIN C [Concomitant]
     Dosage: UNK UNK, ONCE DAILY
  15. MELATONIN [Concomitant]
     Active Substance: MELATONIN
     Indication: SLEEP DISORDER
     Dosage: 5 MG, ONCE DAILY [1 @ 11PM]
  16. NASACORT [Concomitant]
     Active Substance: TRIAMCINOLONE ACETONIDE
     Indication: HYPERSENSITIVITY
     Dosage: UNK UNK, AS NEEDED
  17. LYRICA [Suspect]
     Active Substance: PREGABALIN
     Indication: FIBROMYALGIA
     Dosage: 100 MG, THREE TIMES A DAY
     Route: 048
     Dates: start: 2011
  18. LEVOTHYROXINE. [Concomitant]
     Active Substance: LEVOTHYROXINE
     Indication: HYPOTHYROIDISM
     Dosage: 75 MG, ONCE DAILY (1 BEFORE BREAKFAST)
  19. LYRICA [Suspect]
     Active Substance: PREGABALIN
     Indication: NEUROPATHY PERIPHERAL
     Dosage: 25 MG, UNK

REACTIONS (14)
  - Nausea [Recovered/Resolved]
  - Concussion [Recovered/Resolved]
  - Cerebral haemorrhage [Recovered/Resolved]
  - Brain contusion [Unknown]
  - Peripheral coldness [Recovered/Resolved]
  - Head injury [Recovered/Resolved]
  - Neuropathy peripheral [Recovered/Resolved]
  - Weight decreased [Unknown]
  - Loss of consciousness [Not Recovered/Not Resolved]
  - Vomiting [Recovered/Resolved]
  - Gait disturbance [Not Recovered/Not Resolved]
  - Limb discomfort [Recovered/Resolved]
  - Nerve injury [Not Recovered/Not Resolved]
  - Body height decreased [Not Recovered/Not Resolved]

NARRATIVE: CASE EVENT DATE: 2004
